FAERS Safety Report 8500637-4 (Version None)
Quarter: 2012Q3

REPORT INFORMATION
  Report Type: 
  Country: None (occurrence: None)
  Receive Date: 20120710
  Receipt Date: 20110307
  Transmission Date: 20120928
  Serious: Yes (Death)
  Sender: FDA-Public Use
  Company Number: MY-ROCHE-1084402

PATIENT
  Age: 54 Year
  Sex: Male

DRUGS (1)
  1. PEGASYS [Suspect]
     Indication: PRODUCT USED FOR UNKNOWN INDICATION
     Dates: end: 20101201

REACTIONS (2)
  - ARTERIAL RUPTURE [None]
  - PORTAL HYPERTENSION [None]
